FAERS Safety Report 8921061 (Version 1)
Quarter: 2012Q4

REPORT INFORMATION
  Report Type: 
  Country: BR (occurrence: BR)
  Receive Date: 20121123
  Receipt Date: 20121123
  Transmission Date: 20130627
  Serious: Yes (Other)
  Sender: FDA-Public Use
  Company Number: BR-AMGEN-BRASP2012075064

PATIENT
  Age: 21 Year
  Sex: Female
  Weight: 75 kg

DRUGS (5)
  1. ENBREL [Suspect]
     Indication: ANKYLOSING SPONDYLITIS
     Dosage: 50 mg, once weekly
     Route: 058
     Dates: start: 201206
  2. PURAN T4 [Concomitant]
     Dosage: 112 mg once a day
  3. GLIFAGE [Concomitant]
     Dosage: 500 mg, 2x/day
  4. PRED-FORTE [Concomitant]
     Dosage: UNK UNK, UNK
  5. GLAUCOTAT                          /00189501/ [Concomitant]
     Dosage: unspecified dose, once a day

REACTIONS (4)
  - Blindness unilateral [Unknown]
  - Product quality issue [Unknown]
  - Drug ineffective [Unknown]
  - Uveitis [Unknown]
